FAERS Safety Report 5388678-X (Version None)
Quarter: 2007Q3

REPORT INFORMATION
  Report Type: 
  Country: None (occurrence: None)
  Receive Date: 20070712
  Receipt Date: 20070629
  Transmission Date: 20080115
  Serious: Yes (Other)
  Sender: FDA-Public Use
  Company Number: 158220ISR

PATIENT
  Age: 80 Year
  Sex: Male

DRUGS (1)
  1. DILTIAZEM [Suspect]
     Indication: HYPERTENSION
     Dosage: 120 MG (120 MG, 1 IN 1 D) ORAL
     Route: 048
     Dates: start: 20061107, end: 20070306

REACTIONS (1)
  - LICHENOID KERATOSIS [None]
